FAERS Safety Report 8905307 (Version 2)
Quarter: 2013Q1

REPORT INFORMATION
  Report Type: Report from Study
  Country: CA (occurrence: CA)
  Receive Date: 20121112
  Receipt Date: 20130306
  Transmission Date: 20140127
  Serious: Yes (Other)
  Sender: FDA-Public Use
  Company Number: CA-UCBSA-070576

PATIENT
  Age: 68 Year
  Sex: Female
  Weight: 73 kg

DRUGS (7)
  1. CIMZIA [Suspect]
     Indication: RHEUMATOID ARTHRITIS
     Route: 058
     Dates: start: 201108, end: 201206
  2. CIMZIA [Suspect]
     Indication: RHEUMATOID ARTHRITIS
     Dosage: WEEK 0,2 AND 4.
     Route: 058
     Dates: start: 20110823, end: 201109
  3. ARAVA [Concomitant]
     Indication: RHEUMATOID ARTHRITIS
     Route: 048
     Dates: start: 2005
  4. ARTHOTEC [Concomitant]
  5. PRAMIPEXOLE [Concomitant]
  6. PREVACID [Concomitant]
  7. DIOVAN [Concomitant]

REACTIONS (1)
  - Psoriasis [Not Recovered/Not Resolved]
